FAERS Safety Report 6335736-9 (Version None)
Quarter: 2009Q3

REPORT INFORMATION
  Report Type: 
  Country: None (occurrence: None)
  Receive Date: 20090831
  Receipt Date: 20090821
  Transmission Date: 20100115
  Serious: Yes (Other)
  Sender: FDA-Public Use
  Company Number: US-ELI_LILLY_AND_COMPANY-US200908001254

PATIENT
  Sex: Female

DRUGS (3)
  1. FORTEO [Suspect]
     Indication: OSTEOPOROSIS
     Dosage: UNK, UNK
     Dates: start: 20090101, end: 20090701
  2. TUMS ULTRA [Concomitant]
     Dosage: 400 MG, 3/D
  3. VITAMIN D [Concomitant]
     Dosage: 50000 IU, WEEKLY (1/W)
     Dates: start: 20090602

REACTIONS (1)
  - BLOOD CALCIUM INCREASED [None]
